FAERS Safety Report 18983233 (Version 1)
Quarter: 2021Q1

REPORT INFORMATION
  Report Type: Spontaneous
  Country: JP (occurrence: JP)
  Receive Date: 20210309
  Receipt Date: 20210309
  Transmission Date: 20210420
  Serious: Yes (Other)
  Sender: FDA-Public Use
  Company Number: JP-JNJFOC-20210309437

PATIENT
  Age: 78 Year
  Sex: Male
  Weight: 64 kg

DRUGS (13)
  1. XARELTO [Suspect]
     Active Substance: RIVAROXABAN
     Indication: PRODUCT USED FOR UNKNOWN INDICATION
     Route: 048
  2. ACETYLSALICYLIC ACID [Suspect]
     Active Substance: ASPIRIN
     Indication: THROMBOTIC CEREBRAL INFARCTION
     Dosage: 100 MG, QD
     Route: 048
     Dates: start: 20200923, end: 20201117
  3. BELSOMRA [Concomitant]
     Active Substance: SUVOREXANT
  4. BISOPROLOL FUMARATE. [Concomitant]
     Active Substance: BISOPROLOL FUMARATE
  5. FUROSEMIDE. [Concomitant]
     Active Substance: FUROSEMIDE
  6. ROSUVASTATIN. [Concomitant]
     Active Substance: ROSUVASTATIN
  7. DARBEPOETIN ALFA [Concomitant]
     Active Substance: DARBEPOETIN ALFA
  8. POLAPREZINC [Concomitant]
     Active Substance: POLAPREZINC
  9. GLUCONSAN K [Concomitant]
     Active Substance: POTASSIUM GLUCONATE
  10. ENALAPRIL [Concomitant]
     Active Substance: ENALAPRIL
  11. SPIRONOLACTONE. [Concomitant]
     Active Substance: SPIRONOLACTONE
  12. LANSOPRAZOLE. [Concomitant]
     Active Substance: LANSOPRAZOLE
  13. FOLIAMIN [FOLIC ACID] [Concomitant]

REACTIONS (7)
  - Haemoglobin decreased [Recovering/Resolving]
  - Thrombotic cerebral infarction [Unknown]
  - Blood loss anaemia [Recovered/Resolved]
  - Depressed level of consciousness [Unknown]
  - Small intestinal haemorrhage [Unknown]
  - Faeces discoloured [Unknown]
  - Nephrogenic anaemia [Unknown]

NARRATIVE: CASE EVENT DATE: 20200923
